FAERS Safety Report 14561367 (Version 2)
Quarter: 2018Q2

REPORT INFORMATION
  Report Type: Spontaneous
  Country: US (occurrence: US)
  Receive Date: 20180222
  Receipt Date: 20180404
  Transmission Date: 20180711
  Serious: No
  Sender: FDA-Public Use
  Company Number: US-PFIZER INC-2018060146

PATIENT
  Age: 44 Year
  Sex: Male

DRUGS (2)
  1. LYRICA [Suspect]
     Active Substance: PREGABALIN
     Dosage: 200 MG, (QTY 42 / DAY SUPPLY 14)
  2. LYRICA [Suspect]
     Active Substance: PREGABALIN
     Dosage: 200 MG (QTY 88 / DAY SUPPLY 29)

REACTIONS (3)
  - Peripheral swelling [Unknown]
  - Prescribed overdose [Unknown]
  - Paraesthesia [Unknown]
